FAERS Safety Report 15749532 (Version 1)
Quarter: 2018Q4

REPORT INFORMATION
  Report Type: Spontaneous
  Country: US (occurrence: US)
  Receive Date: 20181205
  Receipt Date: 20181205
  Transmission Date: 20190205
  Serious: No
  Sender: FDA-Public Use
  Company Number: None

PATIENT
  Age: 25 Year
  Sex: Female

DRUGS (1)
  1. CYCLOSPORINE CAP 100MG MD [Suspect]
     Active Substance: CYCLOSPORINE
     Dates: start: 201811

REACTIONS (3)
  - Product dose omission [None]
  - Nausea [None]
  - Inappropriate schedule of product administration [None]

NARRATIVE: CASE EVENT DATE: 20181204
